FAERS Safety Report 7398375-7 (Version None)
Quarter: 2011Q2

REPORT INFORMATION
  Report Type: 
  Country: None (occurrence: None)
  Receive Date: 20110406
  Receipt Date: 20110330
  Transmission Date: 20111010
  Serious: Yes (Life-Threatening, Hospitalization, Other)
  Sender: FDA-Public Use
  Company Number: NL-RB-011359-10

PATIENT
  Sex: Male
  Weight: 54 kg

DRUGS (14)
  1. TEMAZEPAM ACTIVAS [Concomitant]
     Indication: PRODUCT USED FOR UNKNOWN INDICATION
     Route: 065
     Dates: start: 20080101
  2. CHLOORTALIDON RP [Concomitant]
     Indication: PRODUCT USED FOR UNKNOWN INDICATION
     Route: 065
     Dates: start: 20081001
  3. AMLODIPINE MERCK [Concomitant]
     Indication: PRODUCT USED FOR UNKNOWN INDICATION
     Route: 065
     Dates: start: 20100217
  4. PROTOPIC [Suspect]
     Indication: DERMATITIS EXFOLIATIVE
     Route: 065
     Dates: start: 20100406, end: 20100428
  5. SEROXAT [Concomitant]
     Indication: PRODUCT USED FOR UNKNOWN INDICATION
     Route: 065
  6. SELOKEEN ZOC [Concomitant]
     Route: 065
     Dates: start: 20081001
  7. PANTOZOL [Concomitant]
     Indication: PRODUCT USED FOR UNKNOWN INDICATION
     Route: 065
     Dates: start: 20081001
  8. PARACETAMOL ACTAVIS [Concomitant]
     Indication: PRODUCT USED FOR UNKNOWN INDICATION
     Route: 065
  9. MOVICOLON [Concomitant]
     Indication: PRODUCT USED FOR UNKNOWN INDICATION
     Route: 065
  10. SELOKEEN ZOC [Concomitant]
     Indication: PRODUCT USED FOR UNKNOWN INDICATION
     Route: 065
     Dates: start: 20081004
  11. SUBOXONE [Suspect]
     Indication: DRUG DEPENDENCE
     Route: 065
     Dates: start: 20090104
  12. PENTASA [Concomitant]
     Indication: PRODUCT USED FOR UNKNOWN INDICATION
     Route: 065
     Dates: start: 20081007
  13. REFUSAL [Concomitant]
     Indication: PRODUCT USED FOR UNKNOWN INDICATION
     Route: 065
     Dates: start: 20080403
  14. DIAZEPAM ACTAVIS [Concomitant]
     Indication: PRODUCT USED FOR UNKNOWN INDICATION
     Route: 065
     Dates: start: 20081001

REACTIONS (9)
  - DRUG LEVEL INCREASED [None]
  - COORDINATION ABNORMAL [None]
  - HALLUCINATION [None]
  - POTENTIATING DRUG INTERACTION [None]
  - HYPOCALCAEMIA [None]
  - PSYCHOTIC DISORDER [None]
  - HYPOMAGNESAEMIA [None]
  - DEPRESSED LEVEL OF CONSCIOUSNESS [None]
  - HEPATIC FAILURE [None]
